FAERS Safety Report 24082768 (Version 1)
Quarter: 2024Q3

REPORT INFORMATION
  Report Type: Other
  Country: CA (occurrence: CA)
  Receive Date: 20240712
  Receipt Date: 20240712
  Transmission Date: 20241017
  Serious: Yes (Hospitalization, Other)
  Sender: APOTEX
  Company Number: CA-APOTEX-2024AP007897

PATIENT
  Sex: Male

DRUGS (1)
  1. LENALIDOMIDE [Suspect]
     Active Substance: LENALIDOMIDE
     Indication: Plasma cell myeloma refractory
     Dosage: 15 MILLIGRAM, QD
     Route: 048
     Dates: start: 20230530

REACTIONS (2)
  - Malignant neoplasm progression [Not Recovered/Not Resolved]
  - Plasma cell myeloma [Not Recovered/Not Resolved]
